FAERS Safety Report 12529819 (Version 2)
Quarter: 2016Q3

REPORT INFORMATION
  Report Type: Spontaneous
  Country: JP (occurrence: JP)
  Receive Date: 20160706
  Receipt Date: 20160722
  Transmission Date: 20161109
  Serious: Yes (Hospitalization)
  Sender: FDA-Public Use
  Company Number: JP-ELI_LILLY_AND_COMPANY-JP201607000019

PATIENT
  Age: 45 Year
  Sex: Female

DRUGS (3)
  1. PHENOBAL                           /00023201/ [Concomitant]
     Active Substance: PHENOBARBITAL
  2. HYDANTOL [Concomitant]
     Active Substance: PHENYTOIN SODIUM
  3. ZYPREXA [Suspect]
     Active Substance: OLANZAPINE
     Indication: HALLUCINATION, AUDITORY
     Dosage: UNK
     Route: 048

REACTIONS (2)
  - Haemoglobin decreased [Unknown]
  - Off label use [Unknown]
